FAERS Safety Report 4273896-4 (Version None)
Quarter: 2004Q1

REPORT INFORMATION
  Report Type: 
  Country: None (occurrence: None)
  Receive Date: 20040115
  Receipt Date: 20031229
  Transmission Date: 20041129
  Serious: Yes (Other)
  Sender: FDA-Public Use
  Company Number: USA031151721

PATIENT
  Age: 56 Year
  Sex: Female
  Weight: 82 kg

DRUGS (2)
  1. FORTEO [Suspect]
     Indication: OSTEOPOROSIS
     Dates: start: 20031103
  2. ACTONEL [Concomitant]

REACTIONS (18)
  - BONE PAIN [None]
  - BREATH ODOUR [None]
  - BURNING SENSATION [None]
  - DYSGEUSIA [None]
  - FEELING ABNORMAL [None]
  - GASTROOESOPHAGEAL REFLUX DISEASE [None]
  - HAIR GROWTH ABNORMAL [None]
  - LUNG DISORDER [None]
  - MEDICAL DEVICE COMPLICATION [None]
  - MEDICATION ERROR [None]
  - MUSCLE CRAMP [None]
  - NASAL ODOUR [None]
  - NAUSEA [None]
  - PAIN IN EXTREMITY [None]
  - PATHOLOGICAL FRACTURE [None]
  - PELVIC FRACTURE [None]
  - RIB FRACTURE [None]
  - URINE ANALYSIS ABNORMAL [None]
